FAERS Safety Report 7008087-7 (Version None)
Quarter: 2010Q3

REPORT INFORMATION
  Report Type: 
  Country: None (occurrence: None)
  Receive Date: 20100922
  Receipt Date: 20100913
  Transmission Date: 20110219
  Serious: Yes (Hospitalization)
  Sender: FDA-Public Use
  Company Number: US-PURDUE-USA-2010-0046957

PATIENT
  Sex: Male

DRUGS (5)
  1. DILAUDID [Suspect]
     Indication: PRODUCT USED FOR UNKNOWN INDICATION
  2. BELATACEPT [Suspect]
     Indication: RENAL TRANSPLANT
     Dosage: UNK
     Route: 021
     Dates: start: 20050310
  3. NORVASC [Concomitant]
     Indication: PRODUCT USED FOR UNKNOWN INDICATION
     Dosage: UNK
     Dates: start: 20090302
  4. TOPROL-XL [Concomitant]
     Indication: PRODUCT USED FOR UNKNOWN INDICATION
     Dosage: UNK
     Dates: start: 20100824
  5. ZANTAC [Concomitant]
     Indication: PRODUCT USED FOR UNKNOWN INDICATION

REACTIONS (3)
  - HERPES ZOSTER [None]
  - NAUSEA [None]
  - VOMITING [None]
